FAERS Safety Report 7889971-9 (Version None)
Quarter: 2011Q4

REPORT INFORMATION
  Report Type: 
  Country: None (occurrence: None)
  Receive Date: 20111103
  Receipt Date: 20111024
  Transmission Date: 20120403
  Serious: Yes (Other)
  Sender: FDA-Public Use
  Company Number: PHHY2011IT90323

PATIENT

DRUGS (7)
  1. PIPERACILLIN AND TAZOBACTAM [Concomitant]
     Dosage: 4.5 G, Q6H
  2. CUBICIN [Suspect]
     Indication: MUSCLE ABSCESS
  3. LEVOFLOXACIN [Concomitant]
     Dosage: 750 MG, QD
     Route: 042
  4. PEGINTERFERON ALFA-2A [Suspect]
  5. CUBICIN [Suspect]
     Indication: ABSCESS
  6. RIBAVIRIN [Suspect]
  7. CUBICIN [Suspect]
     Indication: PYREXIA
     Dosage: 500 MG, QD
     Route: 042

REACTIONS (10)
  - BLOOD CREATINE PHOSPHOKINASE INCREASED [None]
  - STAPHYLOCOCCAL INFECTION [None]
  - RHABDOMYOLYSIS [None]
  - MYOGLOBIN URINE PRESENT [None]
  - PAIN IN EXTREMITY [None]
  - DRUG ADMINISTRATION ERROR [None]
  - BLOOD LACTATE DEHYDROGENASE INCREASED [None]
  - ASTHENIA [None]
  - ALANINE AMINOTRANSFERASE INCREASED [None]
  - ASPARTATE AMINOTRANSFERASE INCREASED [None]
